FAERS Safety Report 4930203-9 (Version None)
Quarter: 2006Q1

REPORT INFORMATION
  Report Type: 
  Country: None (occurrence: None)
  Receive Date: 20060228
  Receipt Date: 20060210
  Transmission Date: 20060701
  Serious: Yes (Death)
  Sender: FDA-Public Use
  Company Number: CA200602002512

PATIENT
  Age: 61 Year
  Sex: Male

DRUGS (1)
  1. XIGRIS [Suspect]
     Dates: start: 20060130

REACTIONS (1)
  - SEPTIC SHOCK [None]
